FAERS Safety Report 6011254-2 (Version None)
Quarter: 2008Q4

REPORT INFORMATION
  Report Type: 
  Country: None (occurrence: None)
  Receive Date: 20081218
  Receipt Date: 20081211
  Transmission Date: 20090506
  Serious: Yes (Life-Threatening)
  Sender: FDA-Public Use
  Company Number: US-BAYER-200814852BCC

PATIENT

DRUGS (2)
  1. ASPIRIN [Suspect]
     Indication: STENT PLACEMENT
  2. PLAVIX [Suspect]
     Indication: STENT PLACEMENT
     Route: 048

REACTIONS (1)
  - HAEMORRHAGE [None]
